FAERS Safety Report 4743180-0 (Version None)
Quarter: 2005Q3

REPORT INFORMATION
  Report Type: 
  Country: None (occurrence: None)
  Receive Date: 20050809
  Receipt Date: 20050729
  Transmission Date: 20060218
  Serious: Yes (Other)
  Sender: FDA-Public Use
  Company Number: 2005109007

PATIENT
  Age: 28 Year
  Sex: Female
  Weight: 65.7716 kg

DRUGS (2)
  1. SOLU-MEDROL [Suspect]
     Indication: ILL-DEFINED DISORDER
     Dosage: 1 GRAM (1 GRAM), INTRAVENOUS
     Route: 042
     Dates: start: 20050729
  2. ACYCLOVIR [Suspect]
     Indication: HERPES SIMPLEX
     Dosage: INTRAVENOUS
     Route: 042

REACTIONS (1)
  - CATHETER RELATED COMPLICATION [None]
